FAERS Safety Report 9299901 (Version 1)
Quarter: 2013Q1

REPORT INFORMATION
  Report Type: Spontaneous
  Country: US (occurrence: None)
  Receive Date: 20121227
  Receipt Date: 20121227
  Transmission Date: 20140127
  Serious: No
  Sender: FDA-Public Use
  Company Number: PHEH2012US023126

PATIENT
  Age: 48 Year
  Sex: Female

DRUGS (11)
  1. AFINITOR [Suspect]
     Indication: TUBEROUS SCLEROSIS
     Route: 048
     Dates: start: 20121022
  2. DEPAKOTE (VALPROATE SEMISODIUM) [Concomitant]
  3. CLONAZEPAM (CLONAZEPAM) [Concomitant]
  4. VITAMIN D (ERGOCALCIFEROL) [Concomitant]
  5. CALCIUM (CALCIUM) [Concomitant]
  6. DIGOXIN (DIGOXIN) [Concomitant]
  7. LEVOCARNITINE (LEVOCARNITINE) [Concomitant]
  8. LEVOTHYROXINE (LEVOTHYROXINE) [Concomitant]
  9. BANZIL (SQUALANE, TOCOPHEROL, UREA) [Concomitant]
  10. NITROFURANTOIN [Concomitant]
  11. OXYBUTIN (OXYBUTYNIN HYDROCHLORIDE) [Concomitant]

REACTIONS (1)
  - Stomatitis [None]
